FAERS Safety Report 7835132-9 (Version None)
Quarter: 2011Q4

REPORT INFORMATION
  Report Type: 
  Country: None (occurrence: None)
  Receive Date: 20111024
  Receipt Date: 20111013
  Transmission Date: 20120403
  Serious: Yes (Other)
  Sender: FDA-Public Use
  Company Number: PHHY2011GB90479

PATIENT
  Age: 66 Year
  Sex: Female

DRUGS (4)
  1. ACETAMINOPHEN AND CODEINE PHOSPHATE [Suspect]
     Indication: PAIN
     Route: 048
  2. CLOZAPINE [Suspect]
     Route: 048
     Dates: start: 20090626
  3. LITHIUM CARBONATE [Concomitant]
     Indication: SCHIZOPHRENIA
     Dosage: 600 MG, QD
     Route: 048
  4. ALBUTEROL [Concomitant]
     Indication: ASTHMA
     Dosage: 2 DF, QD

REACTIONS (9)
  - GAMMA-GLUTAMYLTRANSFERASE INCREASED [None]
  - BACK PAIN [None]
  - MALAISE [None]
  - BLOOD BILIRUBIN INCREASED [None]
  - INFECTION [None]
  - BLOOD CHOLESTEROL INCREASED [None]
  - BLOOD ALKALINE PHOSPHATASE INCREASED [None]
  - ASPARTATE AMINOTRANSFERASE INCREASED [None]
  - BLOOD CALCIUM INCREASED [None]
